FAERS Safety Report 26173994 (Version 1)
Quarter: 2025Q4

REPORT INFORMATION
  Report Type: Report from Study
  Country: CO (occurrence: CO)
  Receive Date: 20251218
  Receipt Date: 20251218
  Transmission Date: 20260118
  Serious: Yes (Life-Threatening, Hospitalization, Other)
  Sender: ROCHE
  Company Number: CO-002147023-NVSC2024CO238944

PATIENT
  Age: 37 Year
  Sex: Female
  Weight: 60 kg

DRUGS (13)
  1. XOLAIR [Suspect]
     Active Substance: OMALIZUMAB
     Indication: Chronic spontaneous urticaria
     Dosage: 300 MG, QMO
     Route: 058
     Dates: start: 20200201
  2. XOLAIR [Suspect]
     Active Substance: OMALIZUMAB
     Dosage: UNK
  3. XOLAIR [Suspect]
     Active Substance: OMALIZUMAB
     Dosage: 300 MG, QMO
     Route: 058
  4. XOLAIR [Suspect]
     Active Substance: OMALIZUMAB
     Dosage: UNK (START DATE: 12 JUN 2025)
  5. XOLAIR [Suspect]
     Active Substance: OMALIZUMAB
     Dosage: 300 MG, QMO
     Route: 058
  6. XOLAIR [Suspect]
     Active Substance: OMALIZUMAB
     Dosage: 300 MG, QMO
     Route: 058
     Dates: start: 20250919, end: 202509
  7. BILASTINE [Concomitant]
     Active Substance: BILASTINE
     Indication: Product used for unknown indication
     Dosage: 20 MG, PRN (WHEN NEEDED)
  8. BILASTINE [Concomitant]
     Active Substance: BILASTINE
     Dosage: 20 MG, QD
  9. OMEPRAZOLE [Concomitant]
     Active Substance: OMEPRAZOLE
     Indication: Product used for unknown indication
     Dosage: 40 MG, QD
     Route: 048
  10. LACTATED RINGERS SOLUTION [Concomitant]
     Active Substance: CALCIUM CHLORIDE\POTASSIUM CHLORIDE\SODIUM CHLORIDE\SODIUM LACTATE
     Indication: Product used for unknown indication
     Dosage: UNK HOURS
     Route: 042
  11. LACTATED RINGERS SOLUTION [Concomitant]
     Active Substance: CALCIUM CHLORIDE\POTASSIUM CHLORIDE\SODIUM CHLORIDE\SODIUM LACTATE
     Dosage: UNK HOUR
  12. OXYGEN [Concomitant]
     Active Substance: OXYGEN
     Indication: Product used for unknown indication
     Dosage: 1 L
     Route: 045
  13. DICLOFENAC SODIUM [Concomitant]
     Active Substance: DICLOFENAC SODIUM
     Indication: Product used for unknown indication
     Dosage: UNK 75 MG/3ML

REACTIONS (88)
  - Near death experience [Unknown]
  - Nasal turbinate hypertrophy [Unknown]
  - Stent-graft endoleak [Unknown]
  - Pain in extremity [Unknown]
  - Rhinitis allergic [Unknown]
  - Odynophagia [Unknown]
  - Asthenia [Unknown]
  - Chest pain [Unknown]
  - Upper-airway cough syndrome [Unknown]
  - Injection site pain [Unknown]
  - Facial pain [Unknown]
  - Erythema [Unknown]
  - Blood pressure systolic abnormal [Unknown]
  - Mean arterial pressure increased [Unknown]
  - Haemorrhage [Unknown]
  - Oedema peripheral [Unknown]
  - Blood pressure diastolic abnormal [Unknown]
  - Lymphocyte count increased [Unknown]
  - Neck pain [Unknown]
  - Abdominal pain upper [Unknown]
  - Paraesthesia [Unknown]
  - Anxiety [Unknown]
  - Stress [Unknown]
  - Back pain [Unknown]
  - Eye pain [Unknown]
  - Nasal congestion [Unknown]
  - Abdominal pain [Unknown]
  - Sinusitis [Unknown]
  - Nasal septum deviation [Unknown]
  - Neuropathy peripheral [Unknown]
  - Paranasal sinus abscess [Unknown]
  - Nerve compression [Recovered/Resolved]
  - Infection parasitic [Recovered/Resolved]
  - Drug hypersensitivity [Recovered/Resolved]
  - Movement disorder [Recovered/Resolved]
  - Chromaturia [Recovered/Resolved]
  - Hypersensitivity [Recovered/Resolved]
  - Renal disorder [Recovered/Resolved]
  - Dizziness [Recovered/Resolved]
  - Illness [Unknown]
  - Headache [Not Recovered/Not Resolved]
  - Throat irritation [Not Recovered/Not Resolved]
  - Urticaria [Recovered/Resolved]
  - Oropharyngeal pain [Not Recovered/Not Resolved]
  - Myalgia [Recovering/Resolving]
  - Nerve injury [Unknown]
  - Blood glucose abnormal [Unknown]
  - Helicobacter infection [Unknown]
  - Influenza [Unknown]
  - Electric shock sensation [Recovering/Resolving]
  - Blood pressure decreased [Unknown]
  - Thyroid disorder [Unknown]
  - Malaise [Unknown]
  - Monocyte count increased [Unknown]
  - Infection [Unknown]
  - Pain [Not Recovered/Not Resolved]
  - Blood pressure increased [Unknown]
  - Cough [Unknown]
  - Dyspnoea [Unknown]
  - Neuralgia [Unknown]
  - Limb discomfort [Unknown]
  - Oxygen saturation abnormal [Unknown]
  - Tachycardia [Unknown]
  - Gait disturbance [Unknown]
  - Hyperhidrosis [Unknown]
  - Presyncope [Unknown]
  - Hyporeflexia [Unknown]
  - Blood creatine phosphokinase abnormal [Unknown]
  - Blood potassium abnormal [Unknown]
  - Mean platelet volume abnormal [Unknown]
  - Respiratory symptom [Unknown]
  - Facial discomfort [Unknown]
  - Night sweats [Unknown]
  - Peripheral coldness [Unknown]
  - Paraesthesia [Unknown]
  - Pain in extremity [Unknown]
  - Palpitations [Unknown]
  - Nervous system disorder [Recovered/Resolved]
  - Menstrual disorder [Recovered/Resolved]
  - Staphylococcal infection [Recovered/Resolved]
  - Inflammation [Unknown]
  - Dysphagia [Not Recovered/Not Resolved]
  - Hypoglycaemia [Recovered/Resolved]
  - Body dysmorphic disorder [Recovered/Resolved]
  - Papilloma viral infection [Unknown]
  - Lymphadenopathy [Unknown]
  - Fatigue [Unknown]
  - Hypersensitivity [Unknown]

NARRATIVE: CASE EVENT DATE: 20250325
